FAERS Safety Report 25264795 (Version 1)
Quarter: 2025Q2

REPORT INFORMATION
  Report Type: Spontaneous
  Country: US (occurrence: US)
  Receive Date: 20250502
  Receipt Date: 20250502
  Transmission Date: 20250716
  Serious: Yes (Hospitalization)
  Sender: DR REDDYS
  Company Number: US-DRL-USA-USA/2025/04/006340

PATIENT
  Age: 22 Year
  Sex: Male

DRUGS (13)
  1. DASATINIB [Suspect]
     Active Substance: DASATINIB
     Indication: Cancer pain
  2. RUXOLITINIB [Suspect]
     Active Substance: RUXOLITINIB
     Indication: Cancer pain
  3. KETAMINE [Concomitant]
     Active Substance: KETAMINE
     Indication: Cancer pain
  4. FENTANYL [Concomitant]
     Active Substance: FENTANYL
     Indication: Cancer pain
  5. MORPHINE [Concomitant]
     Active Substance: MORPHINE
     Indication: Cancer pain
  6. ACETAMINOPHEN [Concomitant]
     Active Substance: ACETAMINOPHEN
     Indication: Cancer pain
  7. LORAZEPAM [Concomitant]
     Active Substance: LORAZEPAM
     Indication: Cancer pain
  8. DEXAMETHASONE [Concomitant]
     Active Substance: DEXAMETHASONE
     Indication: Cancer pain
  9. GABAPENTIN [Concomitant]
     Active Substance: GABAPENTIN
     Indication: Cancer pain
  10. DULOXETINE [Concomitant]
     Active Substance: DULOXETINE
     Indication: Cancer pain
  11. METHOCARBAMOL [Concomitant]
     Active Substance: METHOCARBAMOL
     Indication: Cancer pain
  12. MERCAPTOPURINE [Concomitant]
     Active Substance: MERCAPTOPURINE
     Indication: Cancer pain
  13. ARSENIC TRIOXIDE [Concomitant]
     Active Substance: ARSENIC TRIOXIDE
     Indication: Cancer pain

REACTIONS (3)
  - Withdrawal syndrome [Unknown]
  - Pain [Unknown]
  - Product use in unapproved indication [Unknown]
